FAERS Safety Report 9431553 (Version 1)
Quarter: 2013Q3

REPORT INFORMATION
  Report Type: Spontaneous
  Country: ES (occurrence: ES)
  Receive Date: 20130731
  Receipt Date: 20130731
  Transmission Date: 20140515
  Serious: Yes (Death, Other)
  Sender: FDA-Public Use
  Company Number: PHHY2013ES079382

PATIENT
  Age: 45 Year
  Sex: Female

DRUGS (13)
  1. CICLOSPORIN [Suspect]
     Indication: PROPHYLAXIS AGAINST GRAFT VERSUS HOST DISEASE
  2. METHOTREXATE [Suspect]
     Indication: PROPHYLAXIS AGAINST GRAFT VERSUS HOST DISEASE
  3. VAXEMHIB [Suspect]
     Indication: IMMUNISATION
  4. CO-TRIMOXAZOLE [Suspect]
     Indication: INFECTION PROPHYLAXIS
  5. ACICLOVIR [Suspect]
     Indication: INFECTION PROPHYLAXIS
  6. QUINOLONES ANTIBIOTIC [Suspect]
     Indication: INFECTION PROPHYLAXIS
  7. PNEUMOCOCCAL VACCINE [Suspect]
     Indication: IMMUNISATION
  8. FLUCONAZOLE [Concomitant]
     Indication: INFECTION PROPHYLAXIS
  9. ENFUVIRTIDE [Concomitant]
     Indication: HIV INFECTION CDC CATEGORY C3
  10. STAVUDINE [Concomitant]
     Indication: HIV INFECTION CDC CATEGORY C3
  11. ABACAVIR [Concomitant]
     Indication: HIV INFECTION CDC CATEGORY C3
  12. LAMIVUDINE [Concomitant]
     Indication: HIV INFECTION CDC CATEGORY C3
  13. DIDANOSINE [Concomitant]
     Indication: HIV INFECTION CDC CATEGORY C3

REACTIONS (13)
  - Acinetobacter infection [Fatal]
  - Acinetobacter test positive [Fatal]
  - Acute graft versus host disease in skin [Recovered/Resolved]
  - Cytomegalovirus infection [Recovered/Resolved]
  - Chronic graft versus host disease [Unknown]
  - Hepatic function abnormal [Unknown]
  - Ascites [Unknown]
  - Pneumonia pneumococcal [Unknown]
  - Encephalitis [Unknown]
  - Sepsis [Unknown]
  - Vaccination failure [Unknown]
  - Pneumonia haemophilus [Unknown]
  - Pleural effusion [Unknown]
